FAERS Safety Report 10916006 (Version 1)
Quarter: 2015Q1

REPORT INFORMATION
  Report Type: Spontaneous
  Country: US (occurrence: None)
  Receive Date: 20150311
  Receipt Date: 20150311
  Transmission Date: 20150721
  Serious: Yes (Disabling)
  Sender: FDA-Public Use
  Company Number: None

PATIENT
  Age: 75 Year
  Sex: Male
  Weight: 52.16 kg

DRUGS (5)
  1. STRONTIUM CITRATE [Concomitant]
  2. FUROSEMIDE. [Concomitant]
     Active Substance: FUROSEMIDE
  3. VITAMIN D [Concomitant]
     Active Substance: CHOLECALCIFEROL
  4. MONTELUKAST [Suspect]
     Active Substance: MONTELUKAST SODIUM
     Indication: HYPERSENSITIVITY
     Dosage: 10 MG, 30, 1 TABLET QD, P.O.
     Route: 048
     Dates: start: 20140501, end: 20140625
  5. CALCIUM CARBONATE. [Concomitant]
     Active Substance: CALCIUM CARBONATE

REACTIONS (7)
  - Bacterial infection [None]
  - Arthropod bite [None]
  - Swelling [None]
  - Inflammation [None]
  - Pseudomonas infection [None]
  - Immunosuppression [None]
  - Staphylococcal abscess [None]

NARRATIVE: CASE EVENT DATE: 20140509
